FAERS Safety Report 10633938 (Version 1)
Quarter: 2014Q4

REPORT INFORMATION
  Report Type: Spontaneous
  Country: US (occurrence: None)
  Receive Date: 20141203
  Receipt Date: 20141203
  Transmission Date: 20150529
  Serious: Yes (Other)
  Sender: FDA-Public Use
  Company Number: COR_00168_2014

PATIENT
  Age: 25 Month
  Sex: Male

DRUGS (3)
  1. MELPHALAN [Suspect]
     Active Substance: MELPHALAN
     Indication: RETINOBLASTOMA
     Dosage: 5 MG, 4X, [DILUTED IN 30 ML OF SALINE, PULSATILE, NON-LAMINATED, MANUAL TECHNIQUE OVER 30 MIN] INTRA-ARTERIAL
     Route: 013
  2. HEPARIN [Concomitant]
     Active Substance: HEPARIN SODIUM
  3. CARBOPLATIN. [Suspect]
     Active Substance: CARBOPLATIN
     Indication: RETINOBLASTOMA
     Dosage: 30 MG 4X, [DILUTED IN 30 ML OF SALINE, PULSATILE, MANUAL, NON-LAMINATED TECHNIQUE OVER 30 MIN] INTRA-ARTERIAL ?
     Route: 013

REACTIONS (3)
  - Iris neovascularisation [None]
  - Cytopenia [None]
  - Vitreous haemorrhage [None]
